FAERS Safety Report 6022366-1 (Version None)
Quarter: 2008Q4

REPORT INFORMATION
  Report Type: 
  Country: None (occurrence: None)
  Receive Date: 20081230
  Receipt Date: 20081114
  Transmission Date: 20090506
  Serious: No
  Sender: FDA-Public Use
  Company Number: US-KINGPHARMUSA00001-K200801317

PATIENT
  Age: 39 Year
  Sex: Female
  Weight: 81.633 kg

DRUGS (3)
  1. INTAL [Suspect]
     Indication: COUGH
     Dosage: UNK
     Dates: start: 20081110, end: 20081110
  2. SYNTHROID [Concomitant]
     Indication: HYPOTHYROIDISM
     Dosage: UNK
  3. ALBUTEROL [Concomitant]
     Indication: COUGH
     Dosage: UNK

REACTIONS (1)
  - THROAT IRRITATION [None]
